FAERS Safety Report 15330468 (Version 1)
Quarter: 2018Q3

REPORT INFORMATION
  Report Type: Spontaneous
  Country: US (occurrence: US)
  Receive Date: 20180829
  Receipt Date: 20180829
  Transmission Date: 20181010
  Serious: No
  Sender: FDA-Public Use
  Company Number: US-GLAXOSMITHKLINE-US2018152812

PATIENT
  Sex: Female

DRUGS (2)
  1. ATOVAQUONE ORAL SUSPENSION [Suspect]
     Active Substance: ATOVAQUONE
     Indication: BABESIOSIS
     Dosage: 7.5 ML, UNK
     Dates: start: 2015
  2. MEPRON [Suspect]
     Active Substance: ATOVAQUONE
     Indication: BABESIOSIS
     Dosage: 30 ML, QD

REACTIONS (9)
  - Diarrhoea [Recovered/Resolved]
  - Product physical issue [Unknown]
  - Product odour abnormal [Unknown]
  - Dizziness [Unknown]
  - Vomiting [Recovered/Resolved]
  - Underdose [Recovered/Resolved]
  - Product use in unapproved indication [Unknown]
  - Therapeutic response unexpected [Unknown]
  - Overdose [Unknown]

NARRATIVE: CASE EVENT DATE: 2015
